FAERS Safety Report 7461986-4 (Version None)
Quarter: 2011Q2

REPORT INFORMATION
  Report Type: 
  Country: None (occurrence: None)
  Receive Date: 20110506
  Receipt Date: 20110427
  Transmission Date: 20111010
  Serious: Yes (Other)
  Sender: FDA-Public Use
  Company Number: PHHY2010MX50135

PATIENT
  Age: 69 Year
  Sex: Female

DRUGS (6)
  1. CO-DIOVAN [Suspect]
     Indication: HYPERTENSION
     Dosage: 160 MG VALS AND 25 MG HCT, DAILY
     Route: 048
  2. MICCIL [Concomitant]
  3. CAPTOPRIL [Concomitant]
  4. LASILACTONE [Concomitant]
  5. MALIVAL [Concomitant]
  6. MACRODANTINA [Concomitant]

REACTIONS (1)
  - SKIN ULCER [None]
